FAERS Safety Report 10051026 (Version 1)
Quarter: 2014Q2

REPORT INFORMATION
  Report Type: Spontaneous
  Country: FI (occurrence: FI)
  Receive Date: 20140401
  Receipt Date: 20140401
  Transmission Date: 20141212
  Serious: Yes (Hospitalization)
  Sender: FDA-Public Use
  Company Number: FI-BRISTOL-MYERS SQUIBB COMPANY-20570628

PATIENT
  Age: 7 Decade
  Sex: Male

DRUGS (1)
  1. YERVOY [Suspect]
     Dosage: NO OF INF:2

REACTIONS (1)
  - Vertigo [Recovering/Resolving]
